FAERS Safety Report 6266906-6 (Version None)
Quarter: 2009Q3

REPORT INFORMATION
  Report Type: 
  Country: None (occurrence: None)
  Receive Date: 20090710
  Receipt Date: 20090710
  Transmission Date: 20100115
  Serious: Yes (Other)
  Sender: FDA-Public Use
  Company Number: None

PATIENT
  Age: 59 Year
  Sex: Female
  Weight: 154.223 kg

DRUGS (1)
  1. BYETTA [Suspect]
     Indication: TYPE 2 DIABETES MELLITUS
     Dosage: 10 MG INJECTION 2 TIMES A DAY UNK
     Dates: start: 20080101, end: 20080415

REACTIONS (2)
  - TOOTHACHE [None]
  - TRIGEMINAL NEURALGIA [None]
